FAERS Safety Report 5808371-6 (Version None)
Quarter: 2008Q3

REPORT INFORMATION
  Report Type: 
  Country: None (occurrence: None)
  Receive Date: 20080714
  Receipt Date: 20080703
  Transmission Date: 20090109
  Serious: Yes (Other)
  Sender: FDA-Public Use
  Company Number: PHHY2008JP13505

PATIENT
  Sex: Male

DRUGS (2)
  1. DIOVAN [Suspect]
     Dosage: 40 MG, UNK
     Route: 048
  2. DIOVAN [Suspect]
     Dosage: 20 MG, UNK
     Route: 048

REACTIONS (2)
  - BRADYCARDIA [None]
  - HEART RATE DECREASED [None]
